FAERS Safety Report 12608606 (Version 2)
Quarter: 2016Q3

REPORT INFORMATION
  Report Type: Report from Study
  Country: CA (occurrence: CA)
  Receive Date: 20160729
  Receipt Date: 20160831
  Transmission Date: 20161109
  Serious: Yes (Death, Hospitalization, Other)
  Sender: FDA-Public Use
  Company Number: CA-GILEAD-2016-0224963

PATIENT
  Age: 55 Year
  Sex: Female

DRUGS (6)
  1. NEUPOGEN [Concomitant]
     Active Substance: FILGRASTIM
  2. TAZOCIN [Concomitant]
     Active Substance: PIPERACILLIN SODIUM\TAZOBACTAM SODIUM
  3. RITUXIMAB [Concomitant]
     Active Substance: RITUXIMAB
     Dosage: UNK
     Route: 042
  4. ROMIPLOSTIM [Concomitant]
     Active Substance: ROMIPLOSTIM
  5. ZYDELIG [Suspect]
     Active Substance: IDELALISIB
     Indication: CHRONIC LYMPHOCYTIC LEUKAEMIA
     Dosage: 150 MG, BID
     Route: 048
     Dates: start: 20160621, end: 20160706
  6. PREDNISONE. [Concomitant]
     Active Substance: PREDNISONE
     Indication: LUNG INFILTRATION

REACTIONS (4)
  - Pneumonia [Fatal]
  - Pneumonitis [Unknown]
  - Viral infection [Fatal]
  - Pulmonary mycosis [Fatal]

NARRATIVE: CASE EVENT DATE: 20160706
